FAERS Safety Report 8955421 (Version 2)
Quarter: 2013Q1

REPORT INFORMATION
  Report Type: Spontaneous
  Country: US (occurrence: US)
  Receive Date: 20121207
  Receipt Date: 20130308
  Transmission Date: 20140127
  Serious: Yes (Other)
  Sender: FDA-Public Use
  Company Number: US-ABBOTT-12P-163-1014718-00

PATIENT
  Age: 34 Year
  Sex: Female

DRUGS (6)
  1. LUPRON DEPOT [Suspect]
     Indication: ENDOMETRIOSIS
     Dates: start: 1991
  2. ALKA-SELTZER [Concomitant]
     Indication: LACTOSE INTOLERANCE
  3. ALKA-SELTZER [Concomitant]
     Indication: CHEST PAIN
  4. CELEBREX [Concomitant]
     Indication: PRODUCT USED FOR UNKNOWN INDICATION
  5. CALCIUM [Concomitant]
     Indication: PRODUCT USED FOR UNKNOWN INDICATION
  6. IRON SULFATE [Concomitant]
     Indication: IRON DEFICIENCY ANAEMIA
     Route: 048

REACTIONS (15)
  - Pneumothorax [Recovered/Resolved]
  - Haemothorax [Recovered/Resolved]
  - Pleural effusion [Recovered/Resolved]
  - Escherichia urinary tract infection [Recovered/Resolved]
  - Urinary tract infection enterococcal [Recovered/Resolved]
  - Pleural effusion [Unknown]
  - Anaemia [Recovered/Resolved]
  - Haemothorax [Recovered/Resolved]
  - Haemothorax [Recovered/Resolved]
  - Hot flush [Unknown]
  - Weight increased [Unknown]
  - Bile duct obstruction [Recovered/Resolved]
  - Abdominal adhesions [Recovered/Resolved]
  - Headache [Unknown]
  - Vulvovaginal dryness [Unknown]
